FAERS Safety Report 6028981-3 (Version None)
Quarter: 2009Q1

REPORT INFORMATION
  Report Type: 
  Country: None (occurrence: None)
  Receive Date: 20090106
  Receipt Date: 20081230
  Transmission Date: 20090719
  Serious: Yes (Hospitalization, Other)
  Sender: FDA-Public Use
  Company Number: US-AMGEN-QUU326123

PATIENT
  Sex: Female

DRUGS (3)
  1. NEULASTA [Suspect]
     Indication: CHEMOTHERAPY
     Route: 065
     Dates: start: 20040101
  2. TAXOL [Concomitant]
  3. GEMZAR [Concomitant]

REACTIONS (3)
  - ANAEMIA [None]
  - BONE PAIN [None]
  - OVARIAN CANCER METASTATIC [None]
